FAERS Safety Report 10021365 (Version 1)
Quarter: 2014Q1

REPORT INFORMATION
  Report Type: Spontaneous
  Country: FR (occurrence: FR)
  Receive Date: 20140319
  Receipt Date: 20140319
  Transmission Date: 20141002
  Serious: Yes (Hospitalization, Other)
  Sender: FDA-Public Use
  Company Number: 2014SP000833

PATIENT
  Age: 51 Year
  Sex: Male
  Weight: 101 kg

DRUGS (10)
  1. FLUOROURACIL [Suspect]
     Indication: COLORECTAL CANCER METASTATIC
     Route: 040
     Dates: start: 20131011, end: 20131220
  2. FLUOROURACIL [Suspect]
     Indication: COLORECTAL CANCER METASTATIC
     Route: 041
     Dates: start: 20131011, end: 20131220
  3. CAMPTO [Suspect]
     Indication: COLORECTAL CANCER METASTATIC
     Dates: start: 20131011, end: 20131220
  4. FOLINIC ACID [Suspect]
     Indication: COLORECTAL CANCER METASTATIC
  5. AXITINIB [Suspect]
     Indication: COLORECTAL CANCER METASTATIC
     Route: 048
     Dates: start: 20130429, end: 20130512
  6. AXITINIB [Suspect]
     Indication: COLORECTAL CANCER METASTATIC
     Route: 048
     Dates: start: 20130514, end: 20130527
  7. AXITINIB [Suspect]
     Indication: COLORECTAL CANCER METASTATIC
     Route: 048
     Dates: start: 20130527, end: 20130614
  8. AXITINIB [Suspect]
     Indication: COLORECTAL CANCER METASTATIC
     Route: 048
     Dates: start: 20130614, end: 20130712
  9. AXITINIB [Suspect]
     Indication: COLORECTAL CANCER METASTATIC
     Route: 048
     Dates: start: 20130712, end: 20131220
  10. AXITINIB [Suspect]
     Indication: COLORECTAL CANCER METASTATIC
     Route: 048
     Dates: start: 20131220, end: 20131230

REACTIONS (4)
  - Subileus [Unknown]
  - Anal fissure [Unknown]
  - Proctalgia [Unknown]
  - Herpes simplex [Unknown]
